FAERS Safety Report 8309396-1 (Version None)
Quarter: 2012Q2

REPORT INFORMATION
  Report Type: 
  Country: None (occurrence: None)
  Receive Date: 20120424
  Receipt Date: 20120424
  Transmission Date: 20120825
  Serious: Yes (Other)
  Sender: FDA-Public Use
  Company Number: None

PATIENT
  Sex: Female

DRUGS (1)
  1. LASTACAFT [Suspect]
     Indication: MULTIPLE ALLERGIES
     Dosage: 1 GTT ON QD OPTH
     Route: 047
     Dates: start: 20120326, end: 20120401

REACTIONS (3)
  - BACK PAIN [None]
  - HEADACHE [None]
  - SINUS DISORDER [None]
